FAERS Safety Report 19745322 (Version 1)
Quarter: 2021Q3

REPORT INFORMATION
  Report Type: Spontaneous
  Country: US (occurrence: US)
  Receive Date: 20210824
  Receipt Date: 20210824
  Transmission Date: 20211014
  Serious: Yes (Hospitalization)
  Sender: FDA-Public Use
  Company Number: None

PATIENT
  Age: 70 Year
  Sex: Female
  Weight: 117 kg

DRUGS (2)
  1. VANCOMYCIN 1.25G IV DAILY [Concomitant]
     Dates: start: 20210723, end: 20210801
  2. CEFTRIAXONE. [Suspect]
     Active Substance: CEFTRIAXONE
     Indication: OSTEOMYELITIS
     Route: 042
     Dates: start: 20210723, end: 20210731

REACTIONS (7)
  - Rash [None]
  - Dialysis [None]
  - Vasculitis [None]
  - IgA nephropathy [None]
  - Acute kidney injury [None]
  - Pharyngeal paraesthesia [None]
  - Tubulointerstitial nephritis [None]

NARRATIVE: CASE EVENT DATE: 20210801
